FAERS Safety Report 7359609-8 (Version None)
Quarter: 2011Q1

REPORT INFORMATION
  Report Type: 
  Country: None (occurrence: None)
  Receive Date: 20110317
  Receipt Date: 20100112
  Transmission Date: 20110831
  Serious: No
  Sender: FDA-Public Use
  Company Number: US-PFIZER INC-2010005152

PATIENT
  Sex: Female
  Weight: 64 kg

DRUGS (9)
  1. NORVASC [Suspect]
     Indication: HYPERTENSION
     Dosage: 10 MG, 1X/DAY
     Route: 048
     Dates: start: 20060101, end: 20100101
  2. HYDROCHLOROTHIAZIDE [Concomitant]
     Dosage: UNK
  3. LOVASTATIN [Suspect]
     Indication: BLOOD CHOLESTEROL INCREASED
     Dates: end: 20090701
  4. CRESTOR [Suspect]
     Indication: BLOOD CHOLESTEROL INCREASED
     Dosage: 2.5 MG, 1X/DAY
     Route: 048
     Dates: start: 20090701
  5. WARFARIN [Concomitant]
     Dosage: UNK
  6. BENICAR [Concomitant]
     Dosage: UNK
  7. CORDARONE [Concomitant]
     Dosage: UNK
  8. ACETYLSALICYLIC ACID [Concomitant]
     Dosage: UNK
  9. LEVITRA [Concomitant]
     Dosage: UNK

REACTIONS (9)
  - BLOOD POTASSIUM ABNORMAL [None]
  - SWELLING FACE [None]
  - ASTHENIA [None]
  - PRURITUS GENERALISED [None]
  - NERVOUSNESS [None]
  - OEDEMA PERIPHERAL [None]
  - FEELING ABNORMAL [None]
  - PRURITUS [None]
  - FLUSHING [None]
